FAERS Safety Report 16013521 (Version 1)
Quarter: 2019Q1

REPORT INFORMATION
  Report Type: Spontaneous
  Country: US (occurrence: US)
  Receive Date: 20190227
  Receipt Date: 20190227
  Transmission Date: 20190418
  Serious: Yes (Hospitalization, Disabling)
  Sender: FDA-Public Use
  Company Number: US-JNJFOC-20190236365

PATIENT
  Age: 52 Year
  Sex: Male

DRUGS (2)
  1. INVOKANA [Suspect]
     Active Substance: CANAGLIFLOZIN
     Indication: TYPE 2 DIABETES MELLITUS
     Route: 048
     Dates: start: 20170412, end: 201706
  2. INVOKANA [Suspect]
     Active Substance: CANAGLIFLOZIN
     Indication: TYPE 2 DIABETES MELLITUS
     Route: 048
     Dates: start: 201706, end: 20170701

REACTIONS (6)
  - Diabetic foot [Recovering/Resolving]
  - Leg amputation [Unknown]
  - Foot amputation [Unknown]
  - Diabetic foot infection [Recovering/Resolving]
  - Hypotension [Unknown]
  - Necrotising soft tissue infection [Recovering/Resolving]

NARRATIVE: CASE EVENT DATE: 201706
